FAERS Safety Report 18685274 (Version 1)
Quarter: 2020Q4

REPORT INFORMATION
  Report Type: Spontaneous
  Country: FR (occurrence: FR)
  Receive Date: 20201230
  Receipt Date: 20201230
  Transmission Date: 20210114
  Serious: Yes (Other)
  Sender: FDA-Public Use
  Company Number: FR-ANIPHARMA-2020-FR-000342

PATIENT
  Age: 69 Year
  Sex: Female
  Weight: 62 kg

DRUGS (2)
  1. CANDESARTAN CILEXETIL. [Suspect]
     Active Substance: CANDESARTAN CILEXETIL
     Indication: HYPERTENSION
     Dosage: 1 DF QD
     Route: 048
     Dates: start: 20201012
  2. MONOPROST [Suspect]
     Active Substance: LATANOPROST
     Dosage: UNKNOWN DOSE AND FREQUENCY
     Dates: start: 20200505

REACTIONS (5)
  - Eye irritation [Not Recovered/Not Resolved]
  - Palpitations [Not Recovered/Not Resolved]
  - Chest discomfort [Not Recovered/Not Resolved]
  - Joint noise [Not Recovered/Not Resolved]
  - Arrhythmia [Not Recovered/Not Resolved]
